FAERS Safety Report 6968380-0 (Version None)
Quarter: 2010Q3

REPORT INFORMATION
  Report Type: 
  Country: None (occurrence: None)
  Receive Date: 20100907
  Receipt Date: 20100830
  Transmission Date: 20110219
  Serious: Yes (Death)
  Sender: FDA-Public Use
  Company Number: CO-ROCHE-724128

PATIENT
  Sex: Male

DRUGS (3)
  1. CELLCEPT [Suspect]
     Indication: LIVER TRANSPLANT
     Route: 048
     Dates: start: 20100114, end: 20100731
  2. PREDNISOLONE [Concomitant]
     Indication: LIVER TRANSPLANT
     Route: 048
  3. TACROLIMUS [Concomitant]
     Indication: LIVER TRANSPLANT
     Route: 048

REACTIONS (2)
  - CARDIOPULMONARY FAILURE [None]
  - ENDOCARDITIS [None]
